FAERS Safety Report 18168091 (Version 1)
Quarter: 2020Q3

REPORT INFORMATION
  Report Type: Spontaneous
  Country: US (occurrence: US)
  Receive Date: 20200819
  Receipt Date: 20200819
  Transmission Date: 20201103
  Serious: No
  Sender: FDA-Public Use
  Company Number: US-BAYER-2020-169907

PATIENT
  Sex: Female

DRUGS (1)
  1. ALEVE [Suspect]
     Active Substance: NAPROXEN SODIUM
     Indication: PAIN
     Dosage: 2 OR 3 TABLETS EVERY 4?6 HOURS AS NEEDED
     Route: 048
     Dates: start: 20200813

REACTIONS (1)
  - Incorrect dose administered [Unknown]
